FAERS Safety Report 10094261 (Version 3)
Quarter: 2015Q3

REPORT INFORMATION
  Report Type: Report from Study
  Country: BR (occurrence: BR)
  Receive Date: 20140422
  Receipt Date: 20150716
  Transmission Date: 20151125
  Serious: Yes (Other)
  Sender: FDA-Public Use
  Company Number: BR-ROCHE-1347162

PATIENT
  Sex: Female
  Weight: 78 kg

DRUGS (5)
  1. XOLAIR [Suspect]
     Active Substance: OMALIZUMAB
     Indication: ASTHMA
     Route: 058
  2. BEROTEC [Concomitant]
     Active Substance: FENOTEROL HYDROBROMIDE
  3. CAPTOPRIL. [Concomitant]
     Active Substance: CAPTOPRIL
  4. ATROVENT [Concomitant]
     Active Substance: IPRATROPIUM BROMIDE
  5. SERETIDE [Concomitant]
     Active Substance: FLUTICASONE FUROATE\SALMETEROL XINAFOATE

REACTIONS (4)
  - Asthmatic crisis [Not Recovered/Not Resolved]
  - Visual impairment [Unknown]
  - Diabetes mellitus [Not Recovered/Not Resolved]
  - Blood pressure increased [Recovered/Resolved]
